FAERS Safety Report 24409366 (Version 1)
Quarter: 2024Q4

REPORT INFORMATION
  Report Type: Spontaneous
  Country: US (occurrence: US)
  Receive Date: 20241008
  Receipt Date: 20241008
  Transmission Date: 20250115
  Serious: Yes (Other)
  Sender: SANDOZ
  Company Number: US-Coherus Biosciences, Inc.-2024-COH-US000405

PATIENT
  Sex: Female

DRUGS (1)
  1. CIMERLI [Suspect]
     Active Substance: RANIBIZUMAB-EQRN
     Indication: Product used for unknown indication
     Dosage: 0.5 MG

REACTIONS (2)
  - Retinal detachment [Unknown]
  - Product dose omission issue [Unknown]
